FAERS Safety Report 5502971-9 (Version None)
Quarter: 2007Q4

REPORT INFORMATION
  Report Type: 
  Country: None (occurrence: None)
  Receive Date: 20071029
  Receipt Date: 20071029
  Transmission Date: 20080405
  Serious: Yes (Other)
  Sender: FDA-Public Use
  Company Number: None

PATIENT
  Age: 52 Year
  Sex: Male
  Weight: 84.8226 kg

DRUGS (2)
  1. SERTRALINE [Suspect]
     Indication: ANXIETY DISORDER
     Dosage: ONE  DAILY
     Dates: start: 20070101, end: 20071026
  2. SERTRALINE [Suspect]
     Indication: DEPRESSION
     Dosage: ONE  DAILY
     Dates: start: 20070101, end: 20071026

REACTIONS (4)
  - DRUG INEFFECTIVE [None]
  - FATIGUE [None]
  - SEDATION [None]
  - THERAPEUTIC RESPONSE UNEXPECTED WITH DRUG SUBSTITUTION [None]
